FAERS Safety Report 10905938 (Version 1)
Quarter: 2015Q1

REPORT INFORMATION
  Report Type: Spontaneous
  Country: US (occurrence: US)
  Receive Date: 20150311
  Receipt Date: 20150311
  Transmission Date: 20150721
  Serious: No
  Sender: FDA-Public Use
  Company Number: US-GLAXOSMITHKLINE-US2015005405

PATIENT
  Age: 77 Year

DRUGS (16)
  1. INFLUENZA VACCINE UNSPECIFIED 2014-2015 SEASON SOLUTION FOR INJECTION [Suspect]
     Active Substance: INFLUENZA VIRUS VACCINE
     Indication: PROPHYLAXIS
     Route: 030
     Dates: start: 20141225, end: 20141225
  2. ZOCOR GENERIC [Concomitant]
  3. LEVALBUTEROL [Concomitant]
     Active Substance: LEVALBUTEROL
  4. ADVAIR DISKUS [Suspect]
     Active Substance: FLUTICASONE PROPIONATE\SALMETEROL XINAFOATE
     Indication: ASTHMA
     Dosage: 250/50 MCG
     Route: 055
  5. ANTIPYRINE [Concomitant]
     Active Substance: ANTIPYRINE
  6. METFORMIN [Concomitant]
     Active Substance: METFORMIN HYDROCHLORIDE
  7. SPIRIVA [Concomitant]
     Active Substance: TIOTROPIUM BROMIDE MONOHYDRATE
  8. VITAMIN D [Concomitant]
     Active Substance: CHOLECALCIFEROL
  9. INFLUENZA VACCINE UNSPECIFIED 2014-2015 SEASON SOLUTION FOR INJECTION [Suspect]
     Active Substance: INFLUENZA VIRUS VACCINE
  10. ADVAIR DISKUS [Suspect]
     Active Substance: FLUTICASONE PROPIONATE\SALMETEROL XINAFOATE
  11. DLICICICE [Concomitant]
  12. FLONASE [Concomitant]
     Active Substance: FLUTICASONE PROPIONATE
  13. ASPIRIN. [Concomitant]
     Active Substance: ASPIRIN
  14. VENTOLIN HFA [Concomitant]
     Active Substance: ALBUTEROL SULFATE
  15. LOSARTAN [Concomitant]
     Active Substance: LOSARTAN
  16. PAROXETINE [Concomitant]
     Active Substance: PAROXETINE\PAROXETINE HYDROCHLORIDE

REACTIONS (2)
  - Cough [Not Recovered/Not Resolved]
  - Nasopharyngitis [Recovered/Resolved]

NARRATIVE: CASE EVENT DATE: 201412
